FAERS Safety Report 4290947-1 (Version None)
Quarter: 2004Q1

REPORT INFORMATION
  Report Type: 
  Country: None (occurrence: None)
  Receive Date: 20040211
  Receipt Date: 20031017
  Transmission Date: 20041129
  Serious: No
  Sender: FDA-Public Use
  Company Number: US-GLAXOSMITHKLINE-A0430681A

PATIENT
  Sex: Female

DRUGS (4)
  1. PAXIL [Suspect]
     Indication: SLEEP DISORDER
     Dates: start: 20031001
  2. VERAPAMIL [Concomitant]
  3. AVELOX [Concomitant]
  4. NORVASC [Concomitant]

REACTIONS (1)
  - BLOOD PRESSURE DECREASED [None]
